FAERS Safety Report 5807912-2 (Version None)
Quarter: 2008Q3

REPORT INFORMATION
  Report Type: 
  Country: None (occurrence: None)
  Receive Date: 20080711
  Receipt Date: 20080703
  Transmission Date: 20090109
  Serious: Yes (Other)
  Sender: FDA-Public Use
  Company Number: FR-PFIZER INC-2008032746

PATIENT
  Sex: Male

DRUGS (2)
  1. LYRICA [Suspect]
  2. DIURETICS [Suspect]

REACTIONS (1)
  - HYPOKALAEMIA [None]
